FAERS Safety Report 4802395-3 (Version None)
Quarter: 2005Q4

REPORT INFORMATION
  Report Type: 
  Country: None (occurrence: None)
  Receive Date: 20051013
  Receipt Date: 20050930
  Transmission Date: 20060501
  Serious: Yes (Other)
  Sender: FDA-Public Use
  Company Number: 2005136629

PATIENT
  Sex: Female

DRUGS (1)
  1. CELEBREX [Suspect]
     Indication: PAIN
     Dosage: 2 IN 1 D

REACTIONS (4)
  - HEART RATE INCREASED [None]
  - KNEE OPERATION [None]
  - PAIN [None]
  - PALPITATIONS [None]
